FAERS Safety Report 19798050 (Version 2)
Quarter: 2021Q3

REPORT INFORMATION
  Report Type: Spontaneous
  Country: US (occurrence: US)
  Receive Date: 20210907
  Receipt Date: 20210916
  Transmission Date: 20211014
  Serious: Yes (Other)
  Sender: FDA-Public Use
  Company Number: US-BAYER-2021-202543

PATIENT
  Sex: Female

DRUGS (1)
  1. ALKA?SELTZER PLUS SEVERE SINUS COLD AND COUGH LIQUID GELS [Suspect]
     Active Substance: ACETAMINOPHEN\DEXTROMETHORPHAN HYDROBROMIDE\GUAIFENESIN\PHENYLEPHRINE HYDROCHLORIDE
     Indication: NASOPHARYNGITIS
     Dosage: 1 DF
     Route: 048

REACTIONS (4)
  - Choking [Recovered/Resolved]
  - Oropharyngeal pain [Unknown]
  - Product physical consistency issue [None]
  - Incorrect dose administered [None]
